FAERS Safety Report 6091826-X (Version None)
Quarter: 2009Q1

REPORT INFORMATION
  Report Type: 
  Country: None (occurrence: None)
  Receive Date: 20090225
  Receipt Date: 20080721
  Transmission Date: 20090719
  Serious: No
  Sender: FDA-Public Use
  Company Number: A0738666A

PATIENT
  Sex: Female

DRUGS (1)
  1. VALTREX [Suspect]
     Indication: GENITAL HERPES
     Dosage: 1G PER DAY
     Route: 048
     Dates: start: 20080520, end: 20080522

REACTIONS (4)
  - FATIGUE [None]
  - HYPERSENSITIVITY [None]
  - PYREXIA [None]
  - VOMITING [None]
